FAERS Safety Report 10499247 (Version 1)
Quarter: 2014Q4

REPORT INFORMATION
  Report Type: Spontaneous
  Country: US (occurrence: US)
  Receive Date: 20141006
  Receipt Date: 20141006
  Transmission Date: 20150528
  Serious: No
  Sender: FDA-Public Use
  Company Number: US-AMGEN INC.-USASP2014032644

PATIENT
  Age: 57 Year

DRUGS (4)
  1. XGEVA [Suspect]
     Active Substance: DENOSUMAB
     Indication: METASTASES TO BONE
     Route: 065
  2. CASODEX [Concomitant]
     Active Substance: BICALUTAMIDE
     Indication: METASTASES TO BONE
  3. XTANDI [Concomitant]
     Active Substance: ENZALUTAMIDE
     Indication: METASTASES TO BONE
  4. FIRMAGON [Concomitant]
     Active Substance: DEGARELIX ACETATE
     Indication: METASTASES TO BONE

REACTIONS (2)
  - Pain [Recovering/Resolving]
  - Fatigue [Unknown]
